FAERS Safety Report 4310850-8 (Version None)
Quarter: 2004Q1

REPORT INFORMATION
  Report Type: 
  Country: None (occurrence: None)
  Receive Date: 20040302
  Receipt Date: 20040226
  Transmission Date: 20041129
  Serious: Yes (Hospitalization)
  Sender: FDA-Public Use
  Company Number: 2004199084DE

PATIENT
  Age: 80 Year
  Sex: Female
  Weight: 81 kg

DRUGS (6)
  1. BEXTRA [Suspect]
     Indication: BACK PAIN
     Dosage: 10 MG, QD, ORAL
     Route: 048
     Dates: start: 20040205, end: 20040209
  2. INSULIN [Concomitant]
  3. ASPIRIN [Concomitant]
  4. AQUAPHOR (PETROLATUM, WOOL ALCOHOLS, MINERAL OIL LIGHT) [Concomitant]
  5. LISINOPRIL [Concomitant]
  6. METOPROLOL [Concomitant]

REACTIONS (3)
  - ACUTE GENERALISED EXANTHEMATOUS PUSTULOSIS [None]
  - PYREXIA [None]
  - SWELLING FACE [None]
